FAERS Safety Report 4507565-X (Version None)
Quarter: 2004Q4

REPORT INFORMATION
  Report Type: 
  Country: None (occurrence: None)
  Receive Date: 20041118
  Receipt Date: 20041101
  Transmission Date: 20050328
  Serious: Yes (Other)
  Sender: FDA-Public Use
  Company Number: 6011420

PATIENT
  Age: 67 Year
  Sex: Female

DRUGS (6)
  1. BISOPROLOL FUMARATE [Suspect]
     Indication: HYPERTENSION
     Dosage: 10 MG, ORAL
     Route: 048
  2. ADALAT [Concomitant]
  3. DETANTOL (BUNAZOSIN HYDROCHLORIDE) [Concomitant]
  4. TOLEDOMIN (MILNACIPRAN HYDROCHLORIDE) [Concomitant]
  5. DIPRIVAN [Concomitant]
  6. SEVOFLURANE (INHALANT) (SEVOFLURANE) [Concomitant]

REACTIONS (2)
  - ELECTROCARDIOGRAM ST SEGMENT DEPRESSION [None]
  - SHOCK [None]
